FAERS Safety Report 10902631 (Version 1)
Quarter: 2015Q1

REPORT INFORMATION
  Report Type: Spontaneous
  Country: DE (occurrence: DE)
  Receive Date: 20150310
  Receipt Date: 20150310
  Transmission Date: 20150721
  Serious: Yes (Other)
  Sender: FDA-Public Use
  Company Number: ALCN2015DE001654

PATIENT

DRUGS (1)
  1. DEXASINE SE [Suspect]
     Active Substance: DEXAMETHASONE SODIUM PHOSPHATE
     Indication: OFF LABEL USE
     Dosage: UNK
     Route: 047

REACTIONS (2)
  - Adrenocortical insufficiency neonatal [Unknown]
  - Product use issue [Unknown]
